FAERS Safety Report 8837811 (Version 1)
Quarter: 2012Q4

REPORT INFORMATION
  Report Type: 
  Country: US (occurrence: US)
  Receive Date: 20121012
  Receipt Date: 20121012
  Transmission Date: 20130627
  Serious: Yes (Other)
  Sender: FDA-Public Use
  Company Number: US-ROCHE-1130240

PATIENT
  Sex: Female
  Weight: 24.5 kg

DRUGS (3)
  1. NUTROPIN [Suspect]
     Indication: GROWTH HORMONE DEFICIENCY
     Dosage: 4.4 cc diluent
     Route: 058
  2. ROCALTROL [Concomitant]
     Route: 065
  3. NEUTRA-PHOS [Concomitant]
     Dosage: 5 packets per day
     Route: 065

REACTIONS (5)
  - Ear infection [Unknown]
  - Gastroenteritis viral [Unknown]
  - Fatigue [Unknown]
  - Arthralgia [Recovered/Resolved]
  - Ear canal erythema [Unknown]
